FAERS Safety Report 7227757-9 (Version None)
Quarter: 2011Q1

REPORT INFORMATION
  Report Type: 
  Country: None (occurrence: None)
  Receive Date: 20110114
  Receipt Date: 20110106
  Transmission Date: 20110831
  Serious: Yes (Other)
  Sender: FDA-Public Use
  Company Number: PT-PFIZER INC-PT-WYE-H16041010

PATIENT
  Age: 56 Year
  Sex: Male

DRUGS (5)
  1. DOXAZOSIN [Concomitant]
     Dosage: UNK
     Route: 065
     Dates: start: 20100101
  2. PANTOC [Suspect]
     Indication: BARRETT'S OESOPHAGUS
     Dosage: 20 MG, 1X/DAY
     Route: 048
     Dates: start: 20080501, end: 20100101
  3. GLUCOSAMINE [Concomitant]
     Route: 065
  4. PANTOC [Suspect]
     Indication: GASTROOESOPHAGEAL REFLUX DISEASE
     Dosage: 20 MG, 1X/DAY
     Route: 048
     Dates: start: 20100618
  5. SERENOA REPENS [Concomitant]

REACTIONS (2)
  - IRON DEFICIENCY ANAEMIA [None]
  - FATIGUE [None]
